FAERS Safety Report 19803564 (Version 1)
Quarter: 2021Q3

REPORT INFORMATION
  Report Type: Spontaneous
  Country: ES (occurrence: ES)
  Receive Date: 20210908
  Receipt Date: 20210908
  Transmission Date: 20211014
  Serious: Yes (Life-Threatening, Hospitalization)
  Sender: FDA-Public Use
  Company Number: ES-ACCORD-237964

PATIENT
  Age: 72 Year
  Sex: Male
  Weight: 72.2 kg

DRUGS (2)
  1. FUROSEMIDE. [Suspect]
     Active Substance: FUROSEMIDE
     Indication: CARDIAC FAILURE
     Dosage: 100MG DAILY 3 DAYS (APRIL 28, 29 AND 30)
     Route: 042
     Dates: start: 20210428, end: 20210430
  2. EDEMOX [Interacting]
     Active Substance: ACETAZOLAMIDE
     Indication: CARDIAC FAILURE
     Dosage: 250 MG TABLETS, 20 TABLETS, 0?0?1/2
     Route: 048
     Dates: start: 20210430, end: 20210516

REACTIONS (2)
  - Drug interaction [Unknown]
  - Encephalopathy [Recovered/Resolved]

NARRATIVE: CASE EVENT DATE: 20210508
